FAERS Safety Report 8973863 (Version 1)
Quarter: 2012Q4

REPORT INFORMATION
  Report Type: 
  Country: IT (occurrence: IT)
  Receive Date: 20121218
  Receipt Date: 20121218
  Transmission Date: 20130627
  Serious: Yes (Hospitalization, Other)
  Sender: FDA-Public Use
  Company Number: PHHY2012IT116329

PATIENT
  Sex: Female

DRUGS (4)
  1. LAMOTRIGINE [Suspect]
     Dosage: 300 mg, UNK
     Route: 048
     Dates: start: 20121128, end: 20121128
  2. ALPRAZOLAM [Suspect]
     Dosage: 1 g, UNK
     Route: 048
     Dates: start: 20121128, end: 20121128
  3. CHLORPROMAZINE [Suspect]
     Dosage: 150 mg, UNK
     Dates: start: 20121128, end: 20121128
  4. BUPROPION [Suspect]
     Dosage: 450 mg, UNK
     Route: 048
     Dates: start: 20121128, end: 20121128

REACTIONS (2)
  - Psychomotor retardation [Recovered/Resolved]
  - Drug abuse [Recovered/Resolved]
